FAERS Safety Report 15172011 (Version 1)
Quarter: 2018Q3

REPORT INFORMATION
  Report Type: Spontaneous
  Country: US (occurrence: US)
  Receive Date: 20180622
  Receipt Date: 20180622
  Transmission Date: 20181010
  Serious: Yes (Hospitalization)
  Sender: FDA-Public Use
  Company Number: None

PATIENT
  Sex: Female

DRUGS (7)
  1. NEXIUM [Concomitant]
     Active Substance: ESOMEPRAZOLE MAGNESIUM
  2. PREDNISONE 5MG [Concomitant]
     Active Substance: PREDNISONE
  3. METOPROLOL SUCCINATE 50MG ER [Concomitant]
  4. ORENCIA [Concomitant]
     Active Substance: ABATACEPT
  5. SPIRIVA [Concomitant]
     Active Substance: TIOTROPIUM BROMIDE MONOHYDRATE
  6. ENBREL [Suspect]
     Active Substance: ETANERCEPT
     Indication: RHEUMATOID ARTHRITIS
     Route: 058
     Dates: start: 20171106
  7. VITAMIN D 1000 UNIT [Concomitant]

REACTIONS (2)
  - Ear infection [None]
  - Pneumonia [None]
